FAERS Safety Report 7804228-X (Version None)
Quarter: 2011Q4

REPORT INFORMATION
  Report Type: 
  Country: None (occurrence: None)
  Receive Date: 20111010
  Receipt Date: 20110926
  Transmission Date: 20120403
  Serious: Yes (Other)
  Sender: FDA-Public Use
  Company Number: PHHY2011JP87005

PATIENT
  Sex: Female
  Weight: 71 kg

DRUGS (4)
  1. VALSARTAN [Suspect]
     Indication: HYPERTENSION
     Dosage: 40 MG, QD
     Route: 048
     Dates: start: 20090616
  2. CARVEDILOL [Suspect]
     Indication: HYPERTENSION
     Dosage: 2.5 MG, DAILY
     Route: 048
     Dates: start: 20090616
  3. PRAVASTATIN SODIUM [Concomitant]
     Dosage: 5 MG, UNK
     Route: 048
  4. RABEPRAZOLE SODIUM [Concomitant]
     Dosage: 10 MG, UNK
     Route: 048
     Dates: start: 20090616

REACTIONS (3)
  - HEART RATE DECREASED [None]
  - CARDIAC ARREST [None]
  - ATRIOVENTRICULAR BLOCK [None]
